FAERS Safety Report 13137700 (Version 5)
Quarter: 2018Q1

REPORT INFORMATION
  Report Type: Spontaneous
  Country: US (occurrence: US)
  Receive Date: 20170123
  Receipt Date: 20180125
  Transmission Date: 20180508
  Serious: No
  Sender: FDA-Public Use
  Company Number: US-UNITED THERAPEUTICS-UNT-2016-010153

PATIENT
  Sex: Female
  Weight: 62.13 kg

DRUGS (5)
  1. ADCIRCA [Concomitant]
     Active Substance: TADALAFIL
     Indication: PRODUCT USED FOR UNKNOWN INDICATION
  2. REMODULIN [Suspect]
     Active Substance: TREPROSTINIL
     Dosage: UNK
     Route: 041
  3. LETAIRIS [Suspect]
     Active Substance: AMBRISENTAN
     Indication: PRODUCT USED FOR UNKNOWN INDICATION
     Dosage: UNK
     Route: 065
  4. REMODULIN [Suspect]
     Active Substance: TREPROSTINIL
     Indication: PULMONARY HYPERTENSION
     Dosage: 0.009 ?G/KG, CONTINUING
     Route: 041
     Dates: start: 20160224
  5. WARFARIN [Concomitant]
     Active Substance: WARFARIN
     Indication: PRODUCT USED FOR UNKNOWN INDICATION

REACTIONS (10)
  - Therapy non-responder [Unknown]
  - Nasal congestion [Recovering/Resolving]
  - Dermatitis contact [Unknown]
  - Pain in jaw [Not Recovered/Not Resolved]
  - Loss of personal independence in daily activities [Unknown]
  - Musculoskeletal pain [Unknown]
  - Malaise [Unknown]
  - Fatigue [Unknown]
  - Arthralgia [Unknown]
  - Diarrhoea [Not Recovered/Not Resolved]

NARRATIVE: CASE EVENT DATE: 2016
